FAERS Safety Report 14330277 (Version 4)
Quarter: 2018Q1

REPORT INFORMATION
  Report Type: Spontaneous
  Country: JP (occurrence: JP)
  Receive Date: 20171227
  Receipt Date: 20180117
  Transmission Date: 20180509
  Serious: Yes (Hospitalization, Other)
  Sender: FDA-Public Use
  Company Number: JP-ABBVIE-17P-087-2204577-00

PATIENT
  Age: 34 Year
  Sex: Female

DRUGS (4)
  1. ADALIMUMAB [Suspect]
     Active Substance: ADALIMUMAB
     Route: 058
  2. ADALIMUMAB [Suspect]
     Active Substance: ADALIMUMAB
     Indication: PSORIASIS
     Route: 058
     Dates: start: 2011
  3. ADALIMUMAB [Suspect]
     Active Substance: ADALIMUMAB
     Route: 058
  4. ADALIMUMAB [Suspect]
     Active Substance: ADALIMUMAB
     Route: 058

REACTIONS (18)
  - Pustular psoriasis [Recovering/Resolving]
  - Systemic inflammatory response syndrome [Unknown]
  - Infection [Recovering/Resolving]
  - Alopecia [Unknown]
  - Abdominal pain upper [Unknown]
  - Fall [Recovering/Resolving]
  - Shock [Unknown]
  - Murphy^s sign positive [Unknown]
  - Flushing [Unknown]
  - Rash pustular [Unknown]
  - Laceration [Unknown]
  - Skin necrosis [Unknown]
  - Abdominal pain [Unknown]
  - Hyperthermia [Unknown]
  - Cholelithiasis [Unknown]
  - Biliary colic [Recovering/Resolving]
  - Generalised oedema [Unknown]
  - Gallbladder enlargement [Unknown]
